FAERS Safety Report 9607302 (Version 1)
Quarter: 2013Q3

REPORT INFORMATION
  Report Type: Spontaneous
  Country: US (occurrence: None)
  Receive Date: 20130927
  Receipt Date: 20130927
  Transmission Date: 20140515
  Serious: Yes (Other)
  Sender: FDA-Public Use
  Company Number: 1646435

PATIENT
  Age: 36 Year
  Sex: Female
  Weight: 149 kg

DRUGS (10)
  1. VANCOMYCIN HYDROCHLORIDE [Suspect]
     Indication: DIABETIC FOOT
     Dosage: 3000 MG MILLIGRAM(S), UNKOWN, INTRAVENOUS (NOT OTHERWISE SPECIFIED)
     Route: 042
     Dates: start: 20130210
  2. VANCOMYCIN HYDROCHLORIDE [Suspect]
     Indication: DIABETIC FOOT
     Dosage: 3000 MG MILLIGRAM(S), UNKOWN, INTRAVENOUS (NOT OTHERWISE SPECIFIED)
     Route: 042
     Dates: start: 20130210
  3. VANCOMYCIN HYDROCHLORIDE [Suspect]
     Indication: DIABETIC FOOT
     Dosage: 3000 MG MILLIGRAM(S), UNKOWN, INTRAVENOUS (NOT OTHERWISE SPECIFIED)
     Route: 042
     Dates: start: 20130210
  4. VANCOMYCIN HYDROCHLORIDE [Suspect]
     Indication: DIABETIC FOOT
     Dosage: 3000 MG MILLIGRAM(S), UNKOWN, INTRAVENOUS (NOT OTHERWISE SPECIFIED)
     Route: 042
     Dates: start: 20130210
  5. LASIX [Suspect]
     Indication: POLYURIA
     Dosage: UNKNOWN
  6. LASIX [Suspect]
     Indication: POLYURIA
     Dosage: UNKNOWN
  7. LASIX [Suspect]
     Indication: POLYURIA
     Dosage: UNKNOWN
  8. NSAID^S [Suspect]
     Indication: PRODUCT USED FOR UNKNOWN INDICATION
     Dosage: UNKNOWN
  9. (ZOSYN) [Concomitant]
  10. (CELEXA /00582602/) [Concomitant]

REACTIONS (1)
  - Renal failure acute [None]
